FAERS Safety Report 12310946 (Version 1)
Quarter: 2016Q2

REPORT INFORMATION
  Report Type: Spontaneous
  Country: US (occurrence: US)
  Receive Date: 20160427
  Receipt Date: 20160427
  Transmission Date: 20160815
  Serious: No
  Sender: FDA-Public Use
  Company Number: US-PFIZER INC-2016192496

PATIENT
  Age: 48 Year
  Sex: Female
  Weight: 98 kg

DRUGS (2)
  1. ADVIL [Suspect]
     Active Substance: IBUPROFEN
     Indication: HEADACHE
     Dosage: 2 LIQUIGELS TAKEN AS RECOMMENEDED BY BOX DIRECTIONS EVERY 6 HOURS CALLER
  2. GLUTEN [Suspect]
     Active Substance: WHEAT GLUTEN

REACTIONS (7)
  - Migraine [Recovered/Resolved]
  - Drug intolerance [Unknown]
  - Product quality issue [Unknown]
  - Reaction to drug excipients [Recovered/Resolved]
  - Product label issue [Unknown]
  - Headache [Unknown]
  - Drug ineffective [Unknown]
